FAERS Safety Report 7416086-6 (Version None)
Quarter: 2011Q2

REPORT INFORMATION
  Report Type: 
  Country: None (occurrence: None)
  Receive Date: 20110414
  Receipt Date: 20110408
  Transmission Date: 20111010
  Serious: Yes (Other)
  Sender: FDA-Public Use
  Company Number: TR-US-EMD SERONO, INC.-7052723

PATIENT
  Sex: Female
  Weight: 112 kg

DRUGS (6)
  1. APRANAX [Concomitant]
     Indication: ANALGESIC THERAPY
     Route: 048
     Dates: start: 20080101
  2. PAROL [Concomitant]
     Indication: ANALGESIC THERAPY
  3. NEROX [Concomitant]
     Indication: VITAMIN B COMPLEX DEFICIENCY
     Route: 048
     Dates: start: 20080101
  4. GLIFOR (METFORMIN HCL) [Concomitant]
     Indication: TYPE 2 DIABETES MELLITUS
     Route: 048
     Dates: start: 20090501, end: 20090530
  5. CALCIMAX [Concomitant]
     Indication: CALCIUM DEFICIENCY
     Route: 048
     Dates: start: 20100101
  6. REBIF [Suspect]
     Indication: MULTIPLE SCLEROSIS
     Route: 058
     Dates: start: 20090501

REACTIONS (4)
  - TOOTH FRACTURE [None]
  - ALOPECIA [None]
  - BLINDNESS [None]
  - TOOTH LOSS [None]
